FAERS Safety Report 5267318-4 (Version None)
Quarter: 2007Q1

REPORT INFORMATION
  Report Type: 
  Country: None (occurrence: None)
  Receive Date: 20070316
  Receipt Date: 20070306
  Transmission Date: 20070707
  Serious: Yes (Other)
  Sender: FDA-Public Use
  Company Number: NL-GLAXOSMITHKLINE-B0462034A

PATIENT
  Sex: Female

DRUGS (5)
  1. FLIXOTIDE [Suspect]
     Dosage: 1000MCG PER DAY
     Route: 055
  2. ACENOCOUMAROL [Concomitant]
     Route: 048
  3. EUCARDIC [Concomitant]
     Route: 048
  4. SPIRONOLACTONE [Concomitant]
     Route: 048
  5. PROMOCARD [Concomitant]
     Route: 048

REACTIONS (2)
  - HAEMORRHAGE SUBCUTANEOUS [None]
  - SKIN ATROPHY [None]
